FAERS Safety Report 6754985-9 (Version None)
Quarter: 2010Q2

REPORT INFORMATION
  Report Type: 
  Country: None (occurrence: None)
  Receive Date: 20100602
  Receipt Date: 20100528
  Transmission Date: 20101027
  Serious: Yes (Death, Hospitalization)
  Sender: FDA-Public Use
  Company Number: 2010SP029984

PATIENT
  Age: 80 Year
  Sex: Male

DRUGS (2)
  1. ORGARAN [Suspect]
     Indication: HEPARIN-INDUCED THROMBOCYTOPENIA
  2. HEPARIN [Suspect]
     Indication: ARTERIOGRAM CORONARY

REACTIONS (10)
  - ACIDOSIS [None]
  - DIALYSIS [None]
  - DRUG HYPERSENSITIVITY [None]
  - HYPERTHERMIA [None]
  - LUNG INFECTION [None]
  - PHLEBITIS [None]
  - PLATELET COUNT DECREASED [None]
  - RENAL FAILURE [None]
  - RESPIRATORY FAILURE [None]
  - THROMBOSIS [None]
